FAERS Safety Report 15725956 (Version 2)
Quarter: 2021Q1

REPORT INFORMATION
  Report Type: Spontaneous
  Country: SR (occurrence: SR)
  Receive Date: 20181216
  Receipt Date: 20210109
  Transmission Date: 20210419
  Serious: Yes (Death, Hospitalization, Other)
  Sender: FDA-Public Use
  Company Number: PHHY2018SR060969

PATIENT
  Sex: Female

DRUGS (2)
  1. GLIVEC [Suspect]
     Active Substance: IMATINIB MESYLATE
     Indication: CHRONIC MYELOID LEUKAEMIA
  2. GLIVEC [Suspect]
     Active Substance: IMATINIB MESYLATE
     Indication: HEPATOSPLENOMEGALY
     Dosage: 600 MG, (6 X 100 MG TABLETS)
     Route: 065

REACTIONS (10)
  - Blast crisis in myelogenous leukaemia [Unknown]
  - Death [Fatal]
  - Multiple organ dysfunction syndrome [Unknown]
  - Neutropenia [Unknown]
  - Bone marrow failure [Unknown]
  - Pancytopenia [Unknown]
  - Anaemia [Unknown]
  - Thrombocytopenia [Unknown]
  - Mental disorder [Unknown]
  - Sepsis [Unknown]
